FAERS Safety Report 17921798 (Version 2)
Quarter: 2020Q2

REPORT INFORMATION
  Report Type: Report from Study
  Country: DE (occurrence: DE)
  Receive Date: 20200622
  Receipt Date: 20200623
  Transmission Date: 20200714
  Serious: Yes (Other)
  Sender: FDA-Public Use
  Company Number: DE-ROCHE-2623004

PATIENT
  Age: 75 Year
  Sex: Female

DRUGS (3)
  1. PERJETA [Suspect]
     Active Substance: PERTUZUMAB
     Indication: HER2 POSITIVE BREAST CANCER
     Route: 065
  2. HERCEPTIN [Suspect]
     Active Substance: TRASTUZUMAB
     Indication: HER2 POSITIVE BREAST CANCER
     Route: 065
  3. EXEMESTAN [Concomitant]
     Active Substance: EXEMESTANE
     Indication: HER2 POSITIVE BREAST CANCER

REACTIONS (10)
  - Restless legs syndrome [Unknown]
  - Mucosal disorder [Unknown]
  - Alopecia [Unknown]
  - Diarrhoea [Unknown]
  - Osteoarthritis [Unknown]
  - Cardiac valve disease [Recovering/Resolving]
  - Fatigue [Unknown]
  - Chills [Unknown]
  - Epistaxis [Unknown]
  - Feeling cold [Unknown]

NARRATIVE: CASE EVENT DATE: 201911
